FAERS Safety Report 20833250 (Version 1)
Quarter: 2022Q2

REPORT INFORMATION
  Report Type: Spontaneous
  Country: US (occurrence: US)
  Receive Date: 20220516
  Receipt Date: 20220516
  Transmission Date: 20220720
  Serious: Yes (Other)
  Sender: FDA-Public Use
  Company Number: US-ROCHE-3087172

PATIENT
  Sex: Female

DRUGS (1)
  1. CLONAZEPAM [Suspect]
     Active Substance: CLONAZEPAM
     Indication: Product used for unknown indication
     Dosage: 0.5 MG, BID (MULTIPLE 1 DAYS)
     Route: 048

REACTIONS (4)
  - Bipolar I disorder [Unknown]
  - Paraesthesia [Unknown]
  - Asthenia [Unknown]
  - Fatigue [Unknown]
